FAERS Safety Report 7978931-5 (Version None)
Quarter: 2011Q4

REPORT INFORMATION
  Report Type: 
  Country: None (occurrence: None)
  Receive Date: 20111214
  Receipt Date: 20111208
  Transmission Date: 20120403
  Serious: Yes (Hospitalization)
  Sender: FDA-Public Use
  Company Number: FR-PFIZER INC-K201100760

PATIENT
  Age: 91 Year
  Sex: Female

DRUGS (6)
  1. RAMIPRIL [Suspect]
     Indication: CARDIAC FAILURE
     Dosage: 2.5 MG, 1X/DAY
     Route: 048
     Dates: start: 20110424, end: 20110426
  2. TRAMADOL HCL [Suspect]
     Indication: CARDIAC FAILURE
     Dosage: 200 MG, 1X/DAY
     Route: 048
     Dates: start: 20110424, end: 20110426
  3. TRAMADOL HCL [Suspect]
     Indication: PAIN
  4. LASIX [Suspect]
     Indication: CARDIAC FAILURE
     Dosage: 20 MG, 1X/DAY
     Route: 048
     Dates: start: 20110428
  5. LOVENOX [Suspect]
     Dosage: 2000 IU, 1X/DAY
     Route: 058
     Dates: start: 20110424, end: 20110426
  6. COLCHICINE [Suspect]
     Indication: GOUT
     Dosage: 2 MG, 1X/DAY
     Route: 048
     Dates: start: 20110425, end: 20110428

REACTIONS (6)
  - GOUT [None]
  - RENAL IMPAIRMENT [None]
  - THROMBOCYTOPENIA [None]
  - LEUKOPENIA [None]
  - NEUTROPENIA [None]
  - CONDITION AGGRAVATED [None]
